FAERS Safety Report 9107673 (Version 1)
Quarter: 2013Q1

REPORT INFORMATION
  Report Type: Report from Study
  Country: JP (occurrence: JP)
  Receive Date: 20130221
  Receipt Date: 20130221
  Transmission Date: 20140127
  Serious: Yes (Death, Life-Threatening, Hospitalization)
  Sender: FDA-Public Use
  Company Number: JP-009507513-1302JPN008214

PATIENT
  Age: 71 Year
  Sex: Male
  Weight: 52 kg

DRUGS (15)
  1. TEMODAL [Suspect]
     Indication: ANAPLASTIC ASTROCYTOMA
     Dosage: 75 MG/M2, QD
     Route: 048
     Dates: start: 20120312, end: 20120316
  2. TEMODAL [Suspect]
     Dosage: 75 MG/M2, QD
     Route: 048
     Dates: start: 2012, end: 20120405
  3. DEPAKENE [Suspect]
     Indication: PROPHYLAXIS
     Dosage: UNK
     Route: 048
     Dates: end: 20120421
  4. BAKTAR [Concomitant]
     Indication: ANTIFUNGAL PROPHYLAXIS
     Dosage: UNK
     Route: 048
     Dates: start: 20120307, end: 20120511
  5. AMLODIN OD [Concomitant]
     Dosage: UNK
     Route: 048
     Dates: end: 20120319
  6. BLOPRESS [Concomitant]
     Dosage: UNK
     Route: 048
     Dates: end: 20120319
  7. LANSOPRAZOLE [Concomitant]
     Dosage: UNK
     Route: 048
     Dates: end: 20120430
  8. MAGMITT [Concomitant]
     Indication: PROPHYLAXIS
     Dosage: UNK
     Route: 048
     Dates: end: 20120430
  9. BFLUID [Concomitant]
     Indication: PROPHYLAXIS
     Dosage: UNK
     Route: 041
     Dates: end: 20120322
  10. GLYCEOL (FRUCTOSE (+) GLYCERIN (+) SODIUM CHLORIDE) [Concomitant]
     Indication: PROPHYLAXIS
     Dosage: UNK
     Route: 041
     Dates: end: 20120322
  11. RINDERON (BETAMETHASONE SODIUM PHOSPHATE) [Concomitant]
     Indication: PROPHYLAXIS
     Dosage: UNK
     Route: 041
     Dates: end: 20120322
  12. RINDERON (BETAMETHASONE) [Concomitant]
     Indication: PROPHYLAXIS
     Dosage: UNK
     Route: 048
     Dates: start: 20120323, end: 20120430
  13. MEROPEN [Concomitant]
     Dosage: UNK
     Route: 041
     Dates: start: 20120724, end: 20120726
  14. PREDOPA [Concomitant]
     Dosage: UNK
     Route: 041
     Dates: start: 20120710
  15. NOREPINEPHRINE [Concomitant]
     Dosage: UNK
     Route: 041
     Dates: start: 20120710

REACTIONS (10)
  - Septic shock [Fatal]
  - Pneumonia [Fatal]
  - Atelectasis [Fatal]
  - Bone marrow failure [Recovering/Resolving]
  - Altered state of consciousness [Recovering/Resolving]
  - Necrotising fasciitis [Not Recovered/Not Resolved]
  - Cytomegalovirus infection [Recovered/Resolved]
  - Urinary tract infection [Recovered/Resolved]
  - Anaemia [Not Recovered/Not Resolved]
  - Oral candidiasis [Recovered/Resolved]
